FAERS Safety Report 7401136-3 (Version None)
Quarter: 2011Q1

REPORT INFORMATION
  Report Type: 
  Country: None (occurrence: None)
  Receive Date: 20110329
  Receipt Date: 20110323
  Transmission Date: 20110831
  Serious: Yes (Life-Threatening, Hospitalization, Other)
  Sender: FDA-Public Use
  Company Number: 2011SP003967

PATIENT
  Age: 69 Year
  Sex: Male
  Weight: 73.5 kg

DRUGS (20)
  1. STRONGER NEO MINOPHAGEN C [Concomitant]
  2. METHYCOBAL [Concomitant]
  3. NEUOTROPIN [Concomitant]
  4. REBETOL [Suspect]
     Indication: HEPATITIS C
     Dosage: 800 MG;QD;PO
     Route: 048
     Dates: start: 20110111, end: 20110115
  5. FERON (INTERFERON) [Suspect]
     Indication: HEPATITIS C
     Dosage: 6 MIU;QD;IV
     Route: 042
     Dates: start: 20110111, end: 20110115
  6. ASPIRIN [Concomitant]
  7. PARIET [Concomitant]
  8. OPALMON (LIMAPROST ALFADEX) [Concomitant]
  9. NOVORAPID [Concomitant]
  10. ADALAT [Concomitant]
  11. LIPITOR [Concomitant]
  12. BASEN [Concomitant]
  13. SELARA (EPLERENONE) [Concomitant]
  14. BLOPRESS [Concomitant]
  15. METFORMIN HCL [Concomitant]
  16. LASIX [Concomitant]
  17. LEVEMIR [Concomitant]
  18. URSO 250 [Concomitant]
  19. STRONGER NEO MINOPHAGEN C [Concomitant]
  20. PLAVIX [Concomitant]

REACTIONS (2)
  - MENINGITIS BACTERIAL [None]
  - PSOAS ABSCESS [None]
